FAERS Safety Report 12640792 (Version 1)
Quarter: 2016Q3

REPORT INFORMATION
  Report Type: Spontaneous
  Country: FR (occurrence: FR)
  Receive Date: 20160810
  Receipt Date: 20160810
  Transmission Date: 20161109
  Serious: Yes (Other)
  Sender: FDA-Public Use
  Company Number: FR-PFIZER INC-2923762

PATIENT
  Age: 55 Year
  Sex: Female

DRUGS (10)
  1. DOCETAXEL. [Suspect]
     Active Substance: DOCETAXEL
     Indication: BREAST CANCER
     Dosage: 75 MG/M2, FREQ: 1 DAY; INTERVAL: 21.
     Route: 042
     Dates: start: 20150217, end: 20150512
  2. ALPRAZOLAM. [Concomitant]
     Active Substance: ALPRAZOLAM
     Indication: PRODUCT USED FOR UNKNOWN INDICATION
  3. MEDROL [Suspect]
     Active Substance: METHYLPREDNISOLONE
     Dosage: 100 MG, UNK
     Route: 048
     Dates: start: 20150217, end: 20150512
  4. URAPIDIL [Concomitant]
     Active Substance: URAPIDIL
     Indication: HYPERTENSION
  5. FENOFIBRATE. [Concomitant]
     Active Substance: FENOFIBRATE
     Indication: HYPERCHOLESTEROLAEMIA
  6. TRASTUZUMAB [Suspect]
     Active Substance: TRASTUZUMAB
     Indication: BREAST CANCER
     Dosage: 6 MG/KG, UNK
     Route: 042
     Dates: start: 20150217, end: 20150512
  7. ONDANSETRON [Concomitant]
     Active Substance: ONDANSETRON
     Indication: PRODUCT USED FOR UNKNOWN INDICATION
     Dosage: 8 MG, UNK
  8. PERTUZUMAB [Suspect]
     Active Substance: PERTUZUMAB
     Indication: BREAST CANCER
     Dosage: 420 MG, UNK
     Route: 042
     Dates: start: 20150217, end: 20150512
  9. METHYLPREDNISOLONE. [Concomitant]
     Active Substance: METHYLPREDNISOLONE
     Indication: PRODUCT USED FOR UNKNOWN INDICATION
     Dosage: 120 MG, UNK
     Route: 042
  10. PANTOPRAZOLE [Concomitant]
     Active Substance: PANTOPRAZOLE SODIUM
     Indication: PRODUCT USED FOR UNKNOWN INDICATION

REACTIONS (6)
  - Conjunctivitis [Recovering/Resolving]
  - Paraesthesia [Unknown]
  - Hearing disability [Unknown]
  - Liver function test abnormal [Unknown]
  - Erythema [Recovering/Resolving]
  - Rhinitis [Unknown]

NARRATIVE: CASE EVENT DATE: 20150519
